FAERS Safety Report 10030376 (Version 1)
Quarter: 2014Q1

REPORT INFORMATION
  Report Type: Spontaneous
  Country: US (occurrence: US)
  Receive Date: 20140323
  Receipt Date: 20140323
  Transmission Date: 20141002
  Serious: No
  Sender: FDA-Public Use
  Company Number: US-ALLERGAN-1313147US

PATIENT
  Age: 79 Year
  Sex: Female

DRUGS (3)
  1. LATISSE 0.03% [Suspect]
     Indication: GROWTH OF EYELASHES
     Dosage: 1 DROP PER APPLICATOR PER EYE, DAILY
     Dates: start: 2011
  2. NAMENDA [Concomitant]
     Indication: MENTAL IMPAIRMENT
     Dosage: 100 MG, DAILY
     Route: 048
  3. MASCARA [Concomitant]
     Dosage: OCCASIONALLY, ONCE A WEEK

REACTIONS (3)
  - Drug ineffective [Unknown]
  - Erythema of eyelid [Unknown]
  - Eye pruritus [Unknown]
